FAERS Safety Report 9384157 (Version 1)
Quarter: 2013Q3

REPORT INFORMATION
  Report Type: Spontaneous
  Country: US (occurrence: US)
  Receive Date: 20130705
  Receipt Date: 20130705
  Transmission Date: 20140515
  Serious: No
  Sender: FDA-Public Use
  Company Number: US-ASTRAZENECA-2013SE49419

PATIENT
  Age: 64 Year
  Sex: Female
  Weight: 78 kg

DRUGS (6)
  1. SYMBICORT [Suspect]
     Indication: ASTHMA
     Dosage: 80/4.5, 1 PUFFS BID
     Route: 055
     Dates: start: 201112
  2. SYMBICORT [Suspect]
     Indication: ASTHMA
     Dosage: 80/4.5, 2 PUFFS BID
     Route: 055
     Dates: start: 20130622
  3. SIMVASTATIN [Concomitant]
     Indication: BLOOD CHOLESTEROL INCREASED
     Route: 048
     Dates: start: 2009
  4. NASONEX NASAL SPRAY [Concomitant]
     Indication: MULTIPLE ALLERGIES
     Dosage: BID
     Route: 045
  5. VITAMIND  OTC [Concomitant]
     Indication: SUPPLEMENTATION THERAPY
     Route: 048
  6. HYDROCODONE APAP LIQUID [Concomitant]
     Indication: HEADACHE
     Dosage: 7.5/500MG Q6H
     Route: 048

REACTIONS (6)
  - Dyspnoea [Unknown]
  - Malaise [Unknown]
  - Pneumonia [Unknown]
  - Incorrect product storage [Unknown]
  - Intentional drug misuse [Unknown]
  - Intentional drug misuse [Recovered/Resolved]
